FAERS Safety Report 5863616-1 (Version None)
Quarter: 2008Q3

REPORT INFORMATION
  Report Type: 
  Country: None (occurrence: None)
  Receive Date: 20080828
  Receipt Date: 20080820
  Transmission Date: 20090109
  Serious: Yes (Hospitalization, Other)
  Sender: FDA-Public Use
  Company Number: US-ELI_LILLY_AND_COMPANY-US200808005225

PATIENT
  Sex: Female
  Weight: 79.365 kg

DRUGS (18)
  1. BYETTA [Suspect]
     Indication: TYPE 2 DIABETES MELLITUS
     Dosage: 5 UG, 2/D
     Route: 058
     Dates: start: 20060101, end: 20060101
  2. BYETTA [Suspect]
     Dosage: 5 UG, 2/D
     Route: 058
     Dates: start: 20060101, end: 20060101
  3. BYETTA [Suspect]
     Dosage: 5 UG, EACH MORNING
     Route: 058
     Dates: start: 20060101, end: 20060101
  4. BYETTA [Suspect]
     Dosage: 10 UG, EACH EVENING
     Route: 058
     Dates: start: 20060101, end: 20060101
  5. BYETTA [Suspect]
     Dosage: 10 UG, 2/D
     Route: 058
     Dates: start: 20070301
  6. TRICOR [Concomitant]
     Dosage: 48 MG, UNK
  7. TOPRAL [Concomitant]
  8. WELCHOL [Concomitant]
     Dosage: UNK, 3/D
  9. ZETIA [Concomitant]
     Dosage: 10 MG, 3/D
  10. ACIPHEX [Concomitant]
     Dosage: 20 MG, UNK
  11. ALLOPURINOL [Concomitant]
     Indication: GOUT
     Dosage: 300 MG, UNK
  12. DIOVAN [Concomitant]
     Dosage: 320 MG, UNK
  13. SINGULAIR [Concomitant]
     Dosage: 10 MG, UNK
  14. ESTROGEN NOS [Concomitant]
     Dosage: 0.05 MG, UNK
  15. LYRICA [Concomitant]
     Dosage: 50 MG, 2/D
  16. PLAVIX [Concomitant]
  17. SYNTHROID [Concomitant]
     Dosage: 50 MG, QOD
  18. SYNTHROID [Concomitant]
     Dosage: 75 MG, QOD

REACTIONS (9)
  - ABDOMINAL PAIN [None]
  - BLOOD CHOLESTEROL INCREASED [None]
  - DEPRESSED LEVEL OF CONSCIOUSNESS [None]
  - HEPATIC ENZYME ABNORMAL [None]
  - LOCALISED INFECTION [None]
  - NAUSEA [None]
  - OEDEMA PERIPHERAL [None]
  - VOMITING [None]
  - WOUND [None]
